FAERS Safety Report 25876033 (Version 1)
Quarter: 2025Q4

REPORT INFORMATION
  Report Type: Spontaneous
  Country: EU (occurrence: EU)
  Receive Date: 20251003
  Receipt Date: 20251003
  Transmission Date: 20260118
  Serious: Yes (Hospitalization, Other)
  Sender: AUROBINDO
  Company Number: EU-CADRBFARM-2025338621

PATIENT
  Sex: Female
  Weight: 68 kg

DRUGS (1)
  1. MOXIFLOXACIN [Suspect]
     Active Substance: MOXIFLOXACIN
     Indication: Pneumonia
     Dosage: 400 MILLIGRAM
     Route: 048
     Dates: start: 2022, end: 2022

REACTIONS (16)
  - Palpitations [Unknown]
  - Dyspnoea [Unknown]
  - Tinnitus [Unknown]
  - Disability [Recovered/Resolved with Sequelae]
  - Tendonitis [Unknown]
  - Tendon pain [Unknown]
  - Swelling [Unknown]
  - Raynaud^s phenomenon [Unknown]
  - Myalgia [Unknown]
  - Muscular weakness [Unknown]
  - Disturbance in attention [Unknown]
  - Fatigue [Unknown]
  - Wheelchair user [Unknown]
  - Retirement [Unknown]
  - Neuralgia [Unknown]
  - Small fibre neuropathy [Unknown]

NARRATIVE: CASE EVENT DATE: 20220101
